FAERS Safety Report 7216946-5 (Version None)
Quarter: 2010Q4

REPORT INFORMATION
  Report Type: 
  Country: None (occurrence: None)
  Receive Date: 20101223
  Receipt Date: 20101214
  Transmission Date: 20110411
  Serious: Yes (Death, Other)
  Sender: FDA-Public Use
  Company Number: 2010171287

PATIENT
  Age: 60 Year
  Sex: Female

DRUGS (19)
  1. FRAGMIN [Suspect]
     Indication: PULMONARY EMBOLISM
     Dosage: 18000 IU, SUBCUTANEOUS ; 5000 IU, SUBCUTANEOUS
     Route: 058
     Dates: start: 20100330, end: 20100416
  2. FRAGMIN [Suspect]
     Indication: PULMONARY EMBOLISM
     Dosage: 18000 IU, SUBCUTANEOUS ; 5000 IU, SUBCUTANEOUS
     Route: 058
     Dates: start: 20090901
  3. CITALOPRAM HYDROBROMIDE [Suspect]
     Indication: DEPRESSION
     Dosage: 40 MG DAILY
  4. HERCEPTIN [Suspect]
     Indication: BREAST CANCER
     Dates: start: 20090915, end: 20100330
  5. TEGRETOL [Concomitant]
  6. KALCIPOS-D (CALCIUM CARBONATE, COLECALCIFEROL) [Concomitant]
  7. MOVICOL (MACROGOL, POTASSIUM CHLORIDE, SODIUM BICARBONATE, SODIUM CHLO [Concomitant]
  8. OMEPRAZOLE [Concomitant]
  9. ZOPICLONE (ZOPICLONE) [Concomitant]
  10. FOLACIN (CALCIUM PHOSPHATE, FOLIC ACID) [Concomitant]
  11. ACETAMINOPHEN [Concomitant]
  12. BEHEPAN (CYANOCOBALAMIN) [Concomitant]
  13. DUROFERON (FERROUS SULFATE) [Concomitant]
  14. DIMETICONE (DIMETICONE) [Concomitant]
  15. OXAZEPAM [Concomitant]
  16. VISCOTEARS (CARBOMER) [Concomitant]
  17. DICLOFENAC SODIUM [Concomitant]
  18. LEVOTHYROXINE SODIUM [Concomitant]
  19. POLYETHYLENE GLYCOL [Concomitant]

REACTIONS (4)
  - CARDIAC FAILURE [None]
  - CONGESTIVE CARDIOMYOPATHY [None]
  - PULMONARY EMBOLISM [None]
  - RETROPERITONEAL HAEMORRHAGE [None]
